FAERS Safety Report 7757905-3 (Version None)
Quarter: 2011Q3

REPORT INFORMATION
  Report Type: 
  Country: None (occurrence: None)
  Receive Date: 20110918
  Receipt Date: 20110616
  Transmission Date: 20111222
  Serious: Yes (Other)
  Sender: FDA-Public Use
  Company Number: PHHY2011BR54761

PATIENT
  Age: 29 Year
  Sex: Female

DRUGS (1)
  1. FORMOTEROL FUMARATE [Suspect]
     Dosage: 1 DF, UNK

REACTIONS (3)
  - PRODUCT QUALITY ISSUE [None]
  - SHOCK [None]
  - CHOKING [None]
